FAERS Safety Report 6307735-4 (Version None)
Quarter: 2009Q3

REPORT INFORMATION
  Report Type: 
  Country: None (occurrence: None)
  Receive Date: 20090811
  Receipt Date: 20090729
  Transmission Date: 20100115
  Serious: Yes (Death)
  Sender: FDA-Public Use
  Company Number: 1-19336303

PATIENT
  Sex: Male

DRUGS (1)
  1. QUININE (MANUFACTURER UNKNOWN) [Suspect]
     Indication: MUSCLE SPASMS
     Dosage: ORAL
     Route: 048
     Dates: start: 20031201, end: 20070701

REACTIONS (1)
  - UNEVALUABLE EVENT [None]
